FAERS Safety Report 21130624 (Version 2)
Quarter: 2022Q3

REPORT INFORMATION
  Report Type: Spontaneous
  Country: US (occurrence: US)
  Receive Date: 20220726
  Receipt Date: 20220823
  Transmission Date: 20221027
  Serious: No
  Sender: FDA-Public Use
  Company Number: US-BAUSCH-BL-2022-018216

PATIENT
  Age: 68 Year
  Sex: Female

DRUGS (1)
  1. ZIRGAN [Suspect]
     Active Substance: GANCICLOVIR
     Indication: Herpes ophthalmic
     Route: 047
     Dates: start: 20220525, end: 20220718

REACTIONS (3)
  - Application site pain [Unknown]
  - Product quality issue [Unknown]
  - Off label use [Unknown]
